FAERS Safety Report 15364652 (Version 1)
Quarter: 2018Q3

REPORT INFORMATION
  Report Type: Spontaneous
  Country: US (occurrence: US)
  Receive Date: 20180910
  Receipt Date: 20180910
  Transmission Date: 20181010
  Serious: Yes (Hospitalization)
  Sender: FDA-Public Use
  Company Number: US-B.I. PHARMACEUTICALS,INC./RIDGEFIELD-2018-BI-044373

PATIENT
  Age: 70 Year
  Sex: Female

DRUGS (1)
  1. JARDIANCE [Suspect]
     Active Substance: EMPAGLIFLOZIN
     Indication: TYPE 2 DIABETES MELLITUS
     Dosage: ADMINISTRATION CORRECT? YES ?ACTION(S) TAKEN WITH PRODUCT: DRUG WITHDRAWN
     Route: 048
     Dates: start: 20180605, end: 20180810

REACTIONS (13)
  - Dizziness [Not Recovered/Not Resolved]
  - White blood cell count increased [Unknown]
  - Asthenia [Not Recovered/Not Resolved]
  - Hypotension [Unknown]
  - Urinary tract infection [Recovered/Resolved]
  - Erythema [Recovered/Resolved]
  - Heart rate decreased [Unknown]
  - Escherichia infection [Unknown]
  - Vomiting [Recovered/Resolved]
  - Pruritus [Recovered/Resolved]
  - Blood calcium abnormal [Unknown]
  - Renal disorder [Unknown]
  - Dehydration [Unknown]

NARRATIVE: CASE EVENT DATE: 20180808
